FAERS Safety Report 8587389-7 (Version None)
Quarter: 2012Q3

REPORT INFORMATION
  Report Type: 
  Country: None (occurrence: None)
  Receive Date: 20120810
  Receipt Date: 20120214
  Transmission Date: 20120928
  Serious: No
  Sender: FDA-Public Use
  Company Number: US-ASTRAZENECA-2011SE78648

PATIENT
  Age: 76 Year
  Sex: Female

DRUGS (2)
  1. CORCIDAN [Concomitant]
  2. ARIMIDEX [Suspect]
     Route: 048

REACTIONS (1)
  - SINUS DISORDER [None]
